FAERS Safety Report 17900972 (Version 2)
Quarter: 2020Q2

REPORT INFORMATION
  Report Type: Spontaneous
  Country: US (occurrence: US)
  Receive Date: 20200616
  Receipt Date: 20200624
  Transmission Date: 20200714
  Serious: Yes (Hospitalization, Other)
  Sender: FDA-Public Use
  Company Number: US-PFIZER INC-2020232778

PATIENT
  Age: 61 Year
  Sex: Male
  Weight: 83.91 kg

DRUGS (2)
  1. CHANTIX [Suspect]
     Active Substance: VARENICLINE TARTRATE
     Indication: SMOKING CESSATION THERAPY
     Dosage: UNK
  2. OXYCODONE [Concomitant]
     Active Substance: OXYCODONE
     Indication: PAIN
     Dosage: 30 MG(30 MG SUDDEN RELEASE. ONE TABLET 5 TIMES A DAY BY MOUTH)
     Route: 048

REACTIONS (2)
  - Aneurysm [Unknown]
  - Disease recurrence [Unknown]
